FAERS Safety Report 4792380-2 (Version None)
Quarter: 2005Q4

REPORT INFORMATION
  Report Type: 
  Country: None (occurrence: None)
  Receive Date: 20051010
  Receipt Date: 20050927
  Transmission Date: 20060501
  Serious: Yes (Hospitalization)
  Sender: FDA-Public Use
  Company Number: IT-JNJFOC-20041200230

PATIENT
  Sex: Male

DRUGS (8)
  1. REOPRO [Suspect]
     Route: 042
  2. REOPRO [Suspect]
     Indication: ACUTE MYOCARDIAL INFARCTION
     Route: 042
  3. ASPIRIN [Concomitant]
     Dosage: FOLLOWING ANGIOPLASTY.
  4. ASPIRIN [Concomitant]
     Dosage: INITIAL ANTITHROMBOTIC
  5. PLAVIX [Concomitant]
     Dosage: STARTED FOLLOWING ANGIOPLASTY.
  6. PLAVIX [Concomitant]
     Dosage: LOADING DOSE.
  7. ENOXAPARIN SODIUM [Concomitant]
     Dosage: STARTED AFTER ANGIOPLASTY
     Route: 058
  8. ENOXAPARIN SODIUM [Concomitant]
     Dosage: INITIAL ANTITHROMBOTIC
     Route: 058

REACTIONS (2)
  - BLOOD GLUCOSE FLUCTUATION [None]
  - THROMBOCYTOPENIA [None]
